FAERS Safety Report 18011651 (Version 1)
Quarter: 2020Q3

REPORT INFORMATION
  Report Type: Spontaneous
  Country: ES (occurrence: ES)
  Receive Date: 20200713
  Receipt Date: 20200713
  Transmission Date: 20201103
  Serious: Yes (Hospitalization)
  Sender: FDA-Public Use
  Company Number: ES-TEVA-2020-ES-1798673

PATIENT
  Age: 78 Year
  Sex: Female

DRUGS (8)
  1. LOSARTAN 100 MG 28 COMPRIMIDOS [Concomitant]
     Active Substance: LOSARTAN
     Indication: HYPERTENSION
     Dosage: 100 MILLIGRAM
     Route: 048
     Dates: start: 20160419
  2. DOLOCATIL 1 G COMPRIMIDOS EFG, 40 COMPRIMIDOS [Concomitant]
     Active Substance: ACETAMINOPHEN
     Indication: MALAISE
     Dosage: 1 GRAM
     Route: 048
     Dates: start: 20140110
  3. TEGRETOL [Concomitant]
     Active Substance: CARBAMAZEPINE
     Indication: TRIGEMINAL NEURALGIA
     Dosage: 200 MILLIGRAM
     Route: 048
     Dates: start: 20180528
  4. AMITRIPTILINA 10 MG 24 COMPRIMIDOS [Concomitant]
     Active Substance: AMITRIPTYLINE
     Indication: TEMPOROMANDIBULAR JOINT SYNDROME
     Dosage: 10 MILLIGRAM
     Route: 048
     Dates: start: 20191105
  5. DELTIUS 25.000 UI/2,5 ML SOLUCION ORAL , 4 FRASCOS DE 2,5 ML [Concomitant]
     Active Substance: CHOLECALCIFEROL
     Indication: PRODUCT USED FOR UNKNOWN INDICATION
     Dosage: 25000 IU
     Route: 048
     Dates: start: 20171006
  6. BUPRENORFINA 35 MICROGRAMOS/H (72 H) PARCHE TRANSDERMICO [Suspect]
     Active Substance: BUPRENORPHINE
     Indication: PAIN
     Dosage: 1 DOSAGEFORM
     Dates: start: 20191106, end: 20191121
  7. ESCITALOPRAM 15 MG 56 COMPRIMIDOS [Concomitant]
     Active Substance: ESCITALOPRAM OXALATE
     Indication: ANXIETY
     Dosage: 15 MILLIGRAM
     Route: 048
     Dates: start: 20171116
  8. ZOLPIDEM MYLAN 10 MG COMPRIMIDOS RECUBIERTOS CON PELICULA EFG , 30 COM [Concomitant]
     Active Substance: ZOLPIDEM TARTRATE
     Indication: ANXIETY
     Dosage: 10 MILLIGRAM
     Route: 048
     Dates: start: 20180223

REACTIONS (1)
  - General physical health deterioration [Recovered/Resolved]

NARRATIVE: CASE EVENT DATE: 20191121
